FAERS Safety Report 24405078 (Version 1)
Quarter: 2024Q4

REPORT INFORMATION
  Report Type: Spontaneous
  Country: US (occurrence: US)
  Receive Date: 20241007
  Receipt Date: 20241007
  Transmission Date: 20250115
  Serious: Yes (Death, Other)
  Sender: PFIZER
  Company Number: US-PFIZER INC-PV202400129206

PATIENT
  Age: 56 Year
  Sex: Male

DRUGS (10)
  1. SPIRONOLACTONE [Suspect]
     Active Substance: SPIRONOLACTONE
     Indication: Primary hyperaldosteronism
     Dosage: UP TO 600 MG/DAY
  2. SPIRONOLACTONE [Suspect]
     Active Substance: SPIRONOLACTONE
     Indication: Disease recurrence
  3. FLUOROURACIL [Suspect]
     Active Substance: FLUOROURACIL
     Indication: Primary hyperaldosteronism
     Dosage: UNK
  4. FLUOROURACIL [Suspect]
     Active Substance: FLUOROURACIL
     Indication: Disease recurrence
  5. AMINOGLUTETHIMIDE [Suspect]
     Active Substance: AMINOGLUTETHIMIDE
     Indication: Primary hyperaldosteronism
     Dosage: UNK
  6. AMINOGLUTETHIMIDE [Suspect]
     Active Substance: AMINOGLUTETHIMIDE
     Indication: Disease recurrence
  7. MITOTANE [Suspect]
     Active Substance: MITOTANE
     Indication: Primary hyperaldosteronism
  8. MITOTANE [Suspect]
     Active Substance: MITOTANE
     Indication: Disease recurrence
  9. CYCLOPHOSPHAMIDE [Suspect]
     Active Substance: CYCLOPHOSPHAMIDE
     Indication: Primary hyperaldosteronism
     Dosage: UNK
  10. CYCLOPHOSPHAMIDE [Suspect]
     Active Substance: CYCLOPHOSPHAMIDE
     Indication: Disease recurrence

REACTIONS (1)
  - Drug ineffective [Fatal]
